FAERS Safety Report 4529741-2 (Version None)
Quarter: 2004Q4

REPORT INFORMATION
  Report Type: 
  Country: None (occurrence: None)
  Receive Date: 20041130
  Receipt Date: 20040917
  Transmission Date: 20050328
  Serious: No
  Sender: FDA-Public Use
  Company Number: WAES 0407USA01009

PATIENT
  Sex: Male

DRUGS (2)
  1. ZETIA [Suspect]
     Dosage: 10 MG DAILY PO
     Route: 048
     Dates: start: 20040429, end: 20040101
  2. LIPITOR [Suspect]
     Dosage: 10 MG PO
     Route: 048
     Dates: start: 20040429, end: 20040101

REACTIONS (2)
  - BLOOD CREATINE PHOSPHOKINASE INCREASED [None]
  - MYALGIA [None]
